FAERS Safety Report 26205054 (Version 1)
Quarter: 2025Q4

REPORT INFORMATION
  Report Type: Report from Study
  Country: CA (occurrence: CA)
  Receive Date: 20251227
  Receipt Date: 20251227
  Transmission Date: 20260117
  Serious: Yes (Other)
  Sender: ALEXION PHARMACEUTICALS
  Company Number: CA-AstraZeneca-CH-01020212A

PATIENT
  Sex: Female

DRUGS (4)
  1. RAVULIZUMAB [Suspect]
     Active Substance: RAVULIZUMAB
     Indication: Antiphospholipid syndrome
     Dosage: 2700 MILLIGRAM, LOADING DOSE
  2. RAVULIZUMAB [Suspect]
     Active Substance: RAVULIZUMAB
     Dosage: 3000 MILLIGRAM
  3. RAVULIZUMAB [Suspect]
     Active Substance: RAVULIZUMAB
     Dosage: 3300 MILLIGRAM, Q8W
     Dates: start: 20250509
  4. RAVULIZUMAB [Suspect]
     Active Substance: RAVULIZUMAB
     Dosage: 3300 MILLIGRAM, Q8W
     Dates: start: 20251024

REACTIONS (6)
  - Urinary tract disorder [Unknown]
  - Anal fungal infection [Unknown]
  - Mobility decreased [Unknown]
  - Moaning [Unknown]
  - Proctalgia [Unknown]
  - Off label use [Unknown]

NARRATIVE: CASE EVENT DATE: 20250101
